FAERS Safety Report 9350340 (Version 1)
Quarter: 2013Q2

REPORT INFORMATION
  Report Type: Report from Study
  Country: CA (occurrence: CA)
  Receive Date: 20130617
  Receipt Date: 20130617
  Transmission Date: 20140414
  Serious: Yes (Other)
  Sender: FDA-Public Use
  Company Number: CA-JNJFOC-20130607137

PATIENT
  Age: 30 Year
  Sex: Female
  Weight: 74 kg

DRUGS (6)
  1. REMICADE [Suspect]
     Indication: CROHN^S DISEASE
     Route: 042
     Dates: start: 20071204
  2. HYDROCORTISONE [Concomitant]
     Indication: PREMEDICATION
     Route: 042
  3. IRON SUPPLEMENT [Concomitant]
     Route: 048
  4. BENADRYL [Concomitant]
     Indication: PREMEDICATION
     Dosage: IV/PO
     Route: 065
  5. ACETAMINOPHEN [Concomitant]
     Indication: PREMEDICATION
     Route: 048
  6. FOLIC ACID [Concomitant]
     Route: 048

REACTIONS (2)
  - Abortion spontaneous [Unknown]
  - Exposure during pregnancy [Recovered/Resolved]
